FAERS Safety Report 4561225-8 (Version None)
Quarter: 2005Q1

REPORT INFORMATION
  Report Type: 
  Country: None (occurrence: None)
  Receive Date: 20050121
  Receipt Date: 20050111
  Transmission Date: 20050727
  Serious: Yes (Hospitalization)
  Sender: FDA-Public Use
  Company Number: MEDI-0002687

PATIENT
  Age: 61 Year
  Sex: Male
  Weight: 75.7507 kg

DRUGS (5)
  1. ETHYOL [Suspect]
     Indication: CHEMOTHERAPY
  2. ETHYOL [Suspect]
     Indication: RADIOTHERAPY
  3. RADIATION THERAPY [Concomitant]
  4. TAXOL [Concomitant]
  5. CARBOPLATIN [Concomitant]

REACTIONS (9)
  - ASTHENIA [None]
  - ATELECTASIS [None]
  - COUGH [None]
  - DECREASED ACTIVITY [None]
  - HAEMATOCRIT DECREASED [None]
  - HYPOTENSION [None]
  - MUCOSAL INFLAMMATION [None]
  - PYREXIA [None]
  - WHITE BLOOD CELL COUNT DECREASED [None]
